FAERS Safety Report 14217897 (Version 1)
Quarter: 2017Q4

REPORT INFORMATION
  Report Type: Spontaneous
  Country: CA (occurrence: CA)
  Receive Date: 20171123
  Receipt Date: 20171123
  Transmission Date: 20180321
  Serious: Yes (Other)
  Sender: FDA-Public Use
  Company Number: CA-APOTEX-2017AP021747

PATIENT
  Sex: Male

DRUGS (2)
  1. APO-PAROXETINE [Suspect]
     Active Substance: PAROXETINE
     Indication: PRODUCT USED FOR UNKNOWN INDICATION
     Dosage: 20 MG, QD
     Route: 048
  2. SEROQUEL [Suspect]
     Active Substance: QUETIAPINE FUMARATE
     Indication: PRODUCT USED FOR UNKNOWN INDICATION
     Dosage: 25 MG, Z
     Route: 065

REACTIONS (5)
  - Colitis ulcerative [Unknown]
  - Thinking abnormal [Not Recovered/Not Resolved]
  - Malaise [Unknown]
  - Insomnia [Not Recovered/Not Resolved]
  - Suicidal ideation [Not Recovered/Not Resolved]
